FAERS Safety Report 18783102 (Version 2)
Quarter: 2021Q1

REPORT INFORMATION
  Report Type: Spontaneous
  Country: PL (occurrence: PL)
  Receive Date: 20210125
  Receipt Date: 20210201
  Transmission Date: 20210419
  Serious: Yes (Hospitalization, Other)
  Sender: FDA-Public Use
  Company Number: PL-JNJFOC-20201253990

PATIENT
  Age: 42 Year
  Sex: Male

DRUGS (25)
  1. IBUPROFEN. [Suspect]
     Active Substance: IBUPROFEN
     Indication: ANALGESIC THERAPY
     Route: 065
  2. PREGABALIN. [Suspect]
     Active Substance: PREGABALIN
     Route: 065
  3. FENTANYL. [Suspect]
     Active Substance: FENTANYL
     Indication: PAIN
     Dosage: ADM MORE THAN 4 TIMES PER DAY DUE TO THE FREQUENT EXCEEDING OF FOUR ADMINISTRATIONS A DAY?200 MG IN
     Route: 002
  4. CLADRIBINE. [Concomitant]
     Active Substance: CLADRIBINE
     Indication: SYSTEMIC MASTOCYTOSIS
     Route: 065
  5. GABAPENTIN. [Suspect]
     Active Substance: GABAPENTIN
     Indication: PAIN
     Dosage: 900 MILLIGRAM DAILY?GABAPENTIN AT A DOSE OF 300 MG EVERY 8 HOURS
     Route: 065
  6. OXYCODONE [Suspect]
     Active Substance: OXYCODONE
     Indication: PAIN
     Dosage: 240 MILLIGRAM DAILY; CONTROLLED?RELEASE TABLETS
     Route: 065
  7. PARACETAMOL [Suspect]
     Active Substance: ACETAMINOPHEN
     Indication: ARTHRALGIA
  8. IBUPROFEN. [Suspect]
     Active Substance: IBUPROFEN
     Indication: ARTHRALGIA
  9. METAMIZOLE [Suspect]
     Active Substance: METAMIZOLE
     Indication: ANALGESIC THERAPY
     Dosage: UNK
     Route: 065
  10. TRAMADOL. [Suspect]
     Active Substance: TRAMADOL
     Indication: ARTHRALGIA
  11. MORPHINE [Suspect]
     Active Substance: MORPHINE
     Indication: ANALGESIC THERAPY
     Dosage: UNK
     Route: 065
  12. KETOPROFEN. [Suspect]
     Active Substance: KETOPROFEN
     Indication: ANALGESIC THERAPY
     Route: 065
  13. TRAMADOL. [Suspect]
     Active Substance: TRAMADOL
     Indication: BONE PAIN
  14. FENTANYL. [Suspect]
     Active Substance: FENTANYL
     Indication: ARTHRALGIA
     Route: 065
  15. KETOPROFEN. [Suspect]
     Active Substance: KETOPROFEN
     Indication: ARTHRALGIA
  16. TRAMADOL. [Suspect]
     Active Substance: TRAMADOL
     Indication: ANALGESIC THERAPY
     Route: 065
  17. METAMIZOLE [Suspect]
     Active Substance: METAMIZOLE
     Indication: BONE PAIN
  18. METAMIZOLE [Suspect]
     Active Substance: METAMIZOLE
     Indication: ARTHRALGIA
  19. PARACETAMOL [Suspect]
     Active Substance: ACETAMINOPHEN
     Indication: ANALGESIC THERAPY
     Dosage: UNK
     Route: 065
  20. IBUPROFEN. [Suspect]
     Active Substance: IBUPROFEN
     Indication: BONE PAIN
  21. KETOPROFEN. [Suspect]
     Active Substance: KETOPROFEN
     Indication: BONE PAIN
  22. MORPHINE [Suspect]
     Active Substance: MORPHINE
     Indication: BONE PAIN
  23. PARACETAMOL [Suspect]
     Active Substance: ACETAMINOPHEN
     Indication: BONE PAIN
  24. MORPHINE [Suspect]
     Active Substance: MORPHINE
     Indication: ARTHRALGIA
  25. PREGABALIN. [Suspect]
     Active Substance: PREGABALIN
     Indication: PAIN
     Dosage: 150 MG, 2X PER DAY
     Route: 065

REACTIONS (8)
  - Anaphylactic shock [Recovered/Resolved]
  - Therapeutic product effect incomplete [Unknown]
  - Drug dependence [Recovered/Resolved]
  - Rhinitis allergic [Recovered/Resolved]
  - Gingival pain [Unknown]
  - Drug intolerance [Unknown]
  - Constipation [Unknown]
  - Toothache [Unknown]
